FAERS Safety Report 17608064 (Version 3)
Quarter: 2024Q2

REPORT INFORMATION
  Report Type: Spontaneous
  Country: US (occurrence: US)
  Receive Date: 20200401
  Receipt Date: 20240627
  Transmission Date: 20240716
  Serious: No
  Sender: FDA-Public Use
  Company Number: US-GSKCCFUS-CASE-00646243_AE-37919

PATIENT
  Sex: Female

DRUGS (1)
  1. BENLYSTA [Suspect]
     Active Substance: BELIMUMAB
     Indication: Systemic lupus erythematosus
     Dosage: 200 MG, WE (UNER THE SKIN)
     Route: 065
     Dates: start: 2019

REACTIONS (3)
  - Incorrect disposal of product [Unknown]
  - Product storage error [Unknown]
  - Product dose omission issue [Unknown]
